FAERS Safety Report 4364651-5 (Version None)
Quarter: 2004Q2

REPORT INFORMATION
  Report Type: 
  Country: None (occurrence: None)
  Receive Date: 20040521
  Receipt Date: 20040505
  Transmission Date: 20050107
  Serious: Yes (Disabling)
  Sender: FDA-Public Use
  Company Number: USA040566802

PATIENT
  Sex: Male

DRUGS (4)
  1. HUMALOG [Suspect]
     Indication: DIABETES MELLITUS INSULIN-DEPENDENT
     Dosage: 30 U DAY
     Dates: start: 20000101
  2. HUMULIN N [Suspect]
     Indication: DIABETES MELLITUS INSULIN-DEPENDENT
     Dosage: 30 U DAY
     Dates: start: 19890101
  3. INSULIN [Suspect]
     Indication: DIABETES MELLITUS INSULIN-DEPENDENT
  4. INSULIN-INSULIN-ANINMAL (UNKNOWN FORMULATION) (INSUL [Suspect]
     Indication: DIABETES MELLITUS INSULIN-DEPENDENT

REACTIONS (12)
  - AMNESIA [None]
  - ANOREXIA [None]
  - BLOOD GLUCOSE INCREASED [None]
  - CATARACT [None]
  - DRUG RESISTANCE [None]
  - HEAD INJURY [None]
  - INSULIN RESISTANCE [None]
  - PHARMACEUTICAL PRODUCT COMPLAINT [None]
  - SHOCK HYPOGLYCAEMIC [None]
  - SKIN ULCER [None]
  - THYROID DISORDER [None]
  - VISUAL ACUITY REDUCED [None]
